FAERS Safety Report 4831486-6 (Version None)
Quarter: 2005Q4

REPORT INFORMATION
  Report Type: 
  Country: None (occurrence: None)
  Receive Date: 20051116
  Receipt Date: 20051104
  Transmission Date: 20060501
  Serious: Yes (Other)
  Sender: FDA-Public Use
  Company Number: 2005-BP-19193RO

PATIENT
  Age: 61 Year
  Sex: Male

DRUGS (3)
  1. DIAZEPAM [Suspect]
     Indication: SEDATION
     Dosage: 4850 MG OVER 5 DAYS, IV
     Route: 042
  2. PROPYLENE GLYCOL [Suspect]
     Indication: SEDATION
     Dosage: 970 GM OVER 5 DAYS, IV
     Route: 042
  3. PHENYTOIN [Concomitant]

REACTIONS (8)
  - ALCOHOL WITHDRAWAL SYNDROME [None]
  - ANION GAP INCREASED [None]
  - BLOOD BICARBONATE INCREASED [None]
  - BLOOD OSMOLARITY INCREASED [None]
  - BLOOD PH DECREASED [None]
  - DRUG TOXICITY [None]
  - HYPERTENSION [None]
  - PYREXIA [None]
